FAERS Safety Report 6361379-7 (Version None)
Quarter: 2009Q3

REPORT INFORMATION
  Report Type: 
  Country: None (occurrence: None)
  Receive Date: 20090916
  Receipt Date: 20090916
  Transmission Date: 20100115
  Serious: Yes (Other)
  Sender: FDA-Public Use
  Company Number: None

PATIENT
  Sex: Female
  Weight: 67.586 kg

DRUGS (1)
  1. YAZ [Suspect]
     Indication: UTERINE LEIOMYOMA
     Dosage: 1 TABLET DAILY (24+4) 047
     Dates: start: 20081101, end: 20090603

REACTIONS (2)
  - DEEP VEIN THROMBOSIS [None]
  - MUSCLE SPASMS [None]
